FAERS Safety Report 12545414 (Version 2)
Quarter: 2016Q3

REPORT INFORMATION
  Report Type: Spontaneous
  Country: BR (occurrence: BR)
  Receive Date: 20160711
  Receipt Date: 20160819
  Transmission Date: 20161109
  Serious: Yes (Other)
  Sender: FDA-Public Use
  Company Number: BR-PFIZER INC-2016251052

PATIENT
  Age: 70 Year
  Sex: Female
  Weight: 66 kg

DRUGS (8)
  1. ADDERA D3 [Concomitant]
     Active Substance: CHOLECALCIFEROL
     Indication: VITAMIN SUPPLEMENTATION
     Dosage: 1 TABLET, WEEKLY
     Dates: start: 201511
  2. XALACOM [Suspect]
     Active Substance: LATANOPROST\TIMOLOL MALEATE
     Indication: GLAUCOMA
     Dosage: [LATANOPROST 3UG] / [TIMOLOL MALEATE 300UG] (ONE DROP IN EACH EYE) ONCE DAILY
     Route: 047
     Dates: start: 2015
  3. VALSARTAN. [Concomitant]
     Active Substance: VALSARTAN
     Indication: HYPERTENSION
     Dosage: 1 TABLET, DAILY
     Dates: start: 201604
  4. CORUS [Concomitant]
     Active Substance: LOSARTAN POTASSIUM
     Indication: HYPERTENSION
     Dosage: 1 TABLET, DAILY
     Dates: end: 201604
  5. CALTRATE /00944201/ [Concomitant]
     Indication: BONE DISORDER
     Dosage: 1 TABLET IN THE MORNING
     Dates: start: 201604
  6. XALATAN [Suspect]
     Active Substance: LATANOPROST
     Dosage: 1 DROP IN EACH EYE (3 UG), AT NIGHT
     Route: 047
     Dates: start: 201512
  7. GLIFAGE [Concomitant]
     Active Substance: METFORMIN HYDROCHLORIDE
     Indication: DIABETES MELLITUS
     Dosage: 1 TABLET, AT NIGHT
     Dates: start: 2006
  8. CALCIUM CARBONATE. [Concomitant]
     Active Substance: CALCIUM CARBONATE
     Indication: BONE DISORDER
     Dosage: UNK
     Dates: start: 2015

REACTIONS (10)
  - Influenza [Not Recovered/Not Resolved]
  - Vision blurred [Not Recovered/Not Resolved]
  - Product packaging issue [Unknown]
  - Cataract [Not Recovered/Not Resolved]
  - Drug dispensing error [Unknown]
  - Hypoacusis [Not Recovered/Not Resolved]
  - Fear [Unknown]
  - Cough [Not Recovered/Not Resolved]
  - Ear discomfort [Not Recovered/Not Resolved]
  - Myocardial infarction [Unknown]

NARRATIVE: CASE EVENT DATE: 201601
